FAERS Safety Report 10600524 (Version 1)
Quarter: 2014Q4

REPORT INFORMATION
  Report Type: Spontaneous
  Country: US (occurrence: US)
  Receive Date: 20141124
  Receipt Date: 20141124
  Transmission Date: 20150529
  Serious: Yes (Hospitalization)
  Sender: FDA-Public Use
  Company Number: US-AMGEN INC.-USASP2014090229

PATIENT
  Age: 48 Year
  Sex: Male

DRUGS (1)
  1. ENBREL [Suspect]
     Active Substance: ETANERCEPT
     Indication: PSORIATIC ARTHROPATHY
     Dosage: 50 MG, QWK
     Route: 065
     Dates: start: 20091015, end: 201311

REACTIONS (5)
  - Pain in extremity [Not Recovered/Not Resolved]
  - Joint stiffness [Not Recovered/Not Resolved]
  - Arthralgia [Not Recovered/Not Resolved]
  - Skin infection [Recovered/Resolved]
  - Malaise [Not Recovered/Not Resolved]

NARRATIVE: CASE EVENT DATE: 201411
